FAERS Safety Report 24142686 (Version 1)
Quarter: 2024Q3

REPORT INFORMATION
  Report Type: Spontaneous
  Country: US (occurrence: None)
  Receive Date: 20240726
  Receipt Date: 20240726
  Transmission Date: 20241017
  Serious: No
  Sender: ASTRAZENECA
  Company Number: 2024A114261

PATIENT
  Sex: Female

DRUGS (3)
  1. SAPHNELO [Suspect]
     Active Substance: ANIFROLUMAB-FNIA
     Dates: start: 202312
  2. SAPHNELO [Suspect]
     Active Substance: ANIFROLUMAB-FNIA
     Dates: start: 202401
  3. SAPHNELO [Suspect]
     Active Substance: ANIFROLUMAB-FNIA
     Dates: start: 202402

REACTIONS (1)
  - Pruritus [Unknown]
